FAERS Safety Report 4511009-1 (Version None)
Quarter: 2004Q4

REPORT INFORMATION
  Report Type: 
  Country: None (occurrence: None)
  Receive Date: 20040928
  Receipt Date: 20040621
  Transmission Date: 20050328
  Serious: No
  Sender: FDA-Public Use
  Company Number: 04P-163-0264420-00

PATIENT
  Age: 38 Year
  Sex: Female
  Weight: 60.782 kg

DRUGS (9)
  1. HUMIRA [Suspect]
     Indication: RHEUMATOID ARTHRITIS
     Dosage: SEE IMAGE
     Route: 058
     Dates: start: 20031001, end: 20040501
  2. HUMIRA [Suspect]
     Indication: RHEUMATOID ARTHRITIS
     Dosage: SEE IMAGE
     Route: 058
     Dates: start: 20040602
  3. PREDNISONE [Concomitant]
  4. METHOTREXATE [Concomitant]
  5. CALCIUM [Concomitant]
  6. TOCOPHEROL CONCENTRATE CAP [Concomitant]
  7. ASCORBIC ACID [Concomitant]
  8. FOLIC ACID [Concomitant]
  9. HYDROCODONE [Concomitant]

REACTIONS (3)
  - PARAESTHESIA [None]
  - PULMONARY CONGESTION [None]
  - SINUSITIS [None]
